FAERS Safety Report 12190906 (Version 4)
Quarter: 2018Q2

REPORT INFORMATION
  Report Type: Spontaneous
  Country: JP (occurrence: JP)
  Receive Date: 20160318
  Receipt Date: 20180427
  Transmission Date: 20180711
  Serious: Yes (Life-Threatening, Hospitalization)
  Sender: FDA-Public Use
  Company Number: JP-BAYER-2016-047613

PATIENT
  Age: 42 Year
  Sex: Female
  Weight: 55 kg

DRUGS (1)
  1. BETAFERON [Suspect]
     Active Substance: INTERFERON BETA-1B
     Indication: RELAPSING-REMITTING MULTIPLE SCLEROSIS
     Dosage: 8000000 IU, QOD
     Route: 058
     Dates: start: 20080923, end: 20160112

REACTIONS (12)
  - Retinal haemorrhage [Recovering/Resolving]
  - Haemolytic anaemia [Recovering/Resolving]
  - Retinal oedema [Recovering/Resolving]
  - Blood pressure increased [Recovering/Resolving]
  - Platelet count decreased [Recovering/Resolving]
  - Thrombotic microangiopathy [Recovering/Resolving]
  - Posterior reversible encephalopathy syndrome [Recovered/Resolved]
  - Visual impairment [Recovering/Resolving]
  - Enteritis [Recovering/Resolving]
  - Headache [Recovering/Resolving]
  - Nausea [Recovering/Resolving]
  - Decreased appetite [Recovering/Resolving]

NARRATIVE: CASE EVENT DATE: 201509
